FAERS Safety Report 16560044 (Version 1)
Quarter: 2019Q3

REPORT INFORMATION
  Report Type: Spontaneous
  Country: US (occurrence: US)
  Receive Date: 20190711
  Receipt Date: 20190711
  Transmission Date: 20191004
  Serious: No
  Sender: FDA-Public Use
  Company Number: US-PFIZER INC-2019290358

PATIENT
  Age: 32 Year
  Sex: Female

DRUGS (4)
  1. GENOTROPIN [Suspect]
     Active Substance: SOMATROPIN
     Indication: MENTAL DISORDER
  2. GENOTROPIN [Suspect]
     Active Substance: SOMATROPIN
     Indication: SLEEP DISORDER
  3. GENOTROPIN [Suspect]
     Active Substance: SOMATROPIN
     Indication: DEPRESSION
  4. GENOTROPIN [Suspect]
     Active Substance: SOMATROPIN
     Indication: GROWTH HORMONE DEFICIENCY
     Dosage: UNK

REACTIONS (1)
  - Injection site pain [Unknown]
